FAERS Safety Report 8535479-7 (Version None)
Quarter: 2012Q3

REPORT INFORMATION
  Report Type: 
  Country: None (occurrence: None)
  Receive Date: 20120718
  Receipt Date: 20120718
  Transmission Date: 20120928
  Serious: Yes (Hospitalization)
  Sender: FDA-Public Use
  Company Number: None

PATIENT
  Sex: Male

DRUGS (2)
  1. BUPROPION HYDROCHLORIDE [Suspect]
     Indication: MAJOR DEPRESSION
     Dosage: 450 MG ONCE AM PO
     Route: 048
     Dates: start: 20120618, end: 20120628
  2. BUPROPION HYDROCHLORIDE [Suspect]
     Indication: ATTENTION DEFICIT/HYPERACTIVITY DISORDER
     Dosage: 450 MG ONCE AM PO
     Route: 048
     Dates: start: 20120618, end: 20120628

REACTIONS (3)
  - INCORRECT DOSE ADMINISTERED [None]
  - TREATMENT NONCOMPLIANCE [None]
  - URTICARIA [None]
